FAERS Safety Report 7901050-0 (Version None)
Quarter: 2011Q4

REPORT INFORMATION
  Report Type: 
  Country: None (occurrence: None)
  Receive Date: 20111108
  Receipt Date: 20111028
  Transmission Date: 20120403
  Serious: Yes (Hospitalization)
  Sender: FDA-Public Use
  Company Number: FR-TEVA-307927USA

PATIENT
  Sex: Female
  Weight: 1.3 kg

DRUGS (2)
  1. PROGLYCEM [Suspect]
     Dosage: 8 MG/KG;
     Route: 048
     Dates: start: 20110127, end: 20110210
  2. PROGLYCEM [Suspect]
     Indication: HYPOGLYCAEMIA NEONATAL
     Dosage: 19.5 MILLIGRAM;
     Route: 048
     Dates: start: 20110119, end: 20110126

REACTIONS (1)
  - OEDEMA PERIPHERAL [None]
